FAERS Safety Report 5593260-5 (Version None)
Quarter: 2008Q1

REPORT INFORMATION
  Report Type: 
  Country: None (occurrence: None)
  Receive Date: 20080116
  Receipt Date: 20080109
  Transmission Date: 20080703
  Serious: Yes (Death)
  Sender: FDA-Public Use
  Company Number: PHBS2007JP21381

PATIENT
  Age: 75 Year
  Sex: Male
  Weight: 60 kg

DRUGS (7)
  1. DIOVAN [Suspect]
     Indication: HYPERTENSION
     Dosage: 160 MG/DAY
     Route: 048
     Dates: start: 20070711, end: 20071219
  2. ACTOS [Concomitant]
     Indication: DIABETES MELLITUS
     Dosage: 15 MG/DAY
     Route: 048
     Dates: start: 20060426, end: 20071219
  3. MYSLEE [Concomitant]
     Indication: INSOMNIA
     Dosage: 5 MG, UNK
     Route: 048
     Dates: start: 20051109, end: 20071218
  4. LOXONIN [Concomitant]
     Indication: UPPER RESPIRATORY TRACT INFLAMMATION
     Dosage: 180 MG, UNK
     Route: 048
     Dates: start: 20071205, end: 20071219
  5. PL [Concomitant]
     Indication: UPPER RESPIRATORY TRACT INFLAMMATION
     Dosage: 3 G, UNK
     Route: 048
     Dates: start: 20071205, end: 20071219
  6. CEFZON [Concomitant]
     Indication: UPPER RESPIRATORY TRACT INFLAMMATION
     Dosage: 300 MG, UNK
     Route: 048
     Dates: start: 20071205, end: 20071219
  7. INFLUENZA VACCINE [Concomitant]
     Indication: INFLUENZA IMMUNISATION
     Dosage: 0.5 ML, UNK
     Route: 058
     Dates: start: 20071017, end: 20071017

REACTIONS (1)
  - ORGAN FAILURE [None]
